FAERS Safety Report 18037787 (Version 1)
Quarter: 2020Q3

REPORT INFORMATION
  Report Type: Spontaneous
  Country: DE (occurrence: CN)
  Receive Date: 20200717
  Receipt Date: 20200717
  Transmission Date: 20201103
  Serious: Yes (Other)
  Sender: FDA-Public Use
  Company Number: CN-ELI_LILLY_AND_COMPANY-CN202007006431

PATIENT
  Age: 53 Year
  Sex: Male
  Weight: 60 kg

DRUGS (7)
  1. 5?FU [FLUOROURACIL] [Concomitant]
     Active Substance: FLUOROURACIL
     Indication: RECTOSIGMOID CANCER
     Dosage: 0.5 G, UNKNOWN
     Route: 040
     Dates: start: 20181109
  2. IRINOTECAN [Concomitant]
     Active Substance: IRINOTECAN
     Indication: RECTOSIGMOID CANCER
     Dosage: 300 MG, UNK
     Route: 041
     Dates: start: 20200410
  3. ERBITUX [Suspect]
     Active Substance: CETUXIMAB
     Indication: RECTOSIGMOID CANCER
     Dosage: 900 MG, UNK
     Route: 041
     Dates: start: 20181109, end: 20190213
  4. 5?FU [FLUOROURACIL] [Concomitant]
     Active Substance: FLUOROURACIL
     Dosage: 4 G, OTHER (FOR 46 HOURS)
     Route: 042
     Dates: start: 20181109
  5. OXALIPLATIN. [Concomitant]
     Active Substance: OXALIPLATIN
     Indication: RECTOSIGMOID CANCER
     Dosage: 150 MG, UNK
     Route: 042
     Dates: start: 20181109, end: 20200310
  6. CALCIUM FOLINATE [Concomitant]
     Active Substance: LEUCOVORIN CALCIUM
     Indication: RECTOSIGMOID CANCER
     Dosage: .6 G, UNK
     Route: 041
     Dates: start: 20181109
  7. ERBITUX [Suspect]
     Active Substance: CETUXIMAB
     Dosage: 700 MG, UNK
     Route: 041
     Dates: start: 20200109

REACTIONS (1)
  - Myelosuppression [Unknown]

NARRATIVE: CASE EVENT DATE: 20200617
